FAERS Safety Report 7375934-9 (Version None)
Quarter: 2011Q1

REPORT INFORMATION
  Report Type: 
  Country: None (occurrence: None)
  Receive Date: 20110317
  Receipt Date: 20110302
  Transmission Date: 20110831
  Serious: Yes (Hospitalization)
  Sender: FDA-Public Use
  Company Number: 2011MA001615

PATIENT
  Age: 49 Year
  Sex: Female

DRUGS (2)
  1. TRIAMCINOLONE ACETONIDE [Suspect]
     Indication: BONE PAIN
     Dosage: 20 MG;
  2. ROPIVACAINE [Concomitant]

REACTIONS (12)
  - PARAESTHESIA [None]
  - QUADRIPLEGIA [None]
  - ABSCESS NECK [None]
  - PNEUMONIA [None]
  - SOFT TISSUE INFLAMMATION [None]
  - SCIATICA [None]
  - STAPHYLOCOCCUS TEST POSITIVE [None]
  - BACK PAIN [None]
  - NO THERAPEUTIC RESPONSE [None]
  - SEPSIS [None]
  - CARDIAC FAILURE [None]
  - PERICARDIAL EFFUSION [None]
